FAERS Safety Report 9410269 (Version 1)
Quarter: 2013Q3

REPORT INFORMATION
  Report Type: Spontaneous
  Country: FR (occurrence: FR)
  Receive Date: 20130719
  Receipt Date: 20130719
  Transmission Date: 20140515
  Serious: Yes (Hospitalization)
  Sender: FDA-Public Use
  Company Number: FR-ABBOTT-13X-056-1121603-00

PATIENT
  Age: 90 Year
  Sex: Female

DRUGS (12)
  1. DEPAKOTE [Suspect]
     Indication: EPILEPSY
     Route: 048
     Dates: end: 20130317
  2. DETENSIEL [Concomitant]
     Indication: PRODUCT USED FOR UNKNOWN INDICATION
  3. KALEORID [Concomitant]
     Indication: PRODUCT USED FOR UNKNOWN INDICATION
  4. BROMAZEPAM [Concomitant]
     Indication: PRODUCT USED FOR UNKNOWN INDICATION
  5. NITRIDERM [Concomitant]
     Indication: PRODUCT USED FOR UNKNOWN INDICATION
  6. NOCTAMIDE [Concomitant]
     Indication: PRODUCT USED FOR UNKNOWN INDICATION
  7. OMEPRAZOLE [Concomitant]
     Indication: PRODUCT USED FOR UNKNOWN INDICATION
  8. PLAVIX [Concomitant]
     Indication: PRODUCT USED FOR UNKNOWN INDICATION
  9. RAMIPRIL [Concomitant]
     Indication: PRODUCT USED FOR UNKNOWN INDICATION
  10. SOLUPRED [Concomitant]
     Indication: PRODUCT USED FOR UNKNOWN INDICATION
  11. TIAPRIDAL [Concomitant]
     Indication: PRODUCT USED FOR UNKNOWN INDICATION
  12. ELECTROLYTES NOS W/MACROGOL 3350 [Concomitant]
     Indication: PRODUCT USED FOR UNKNOWN INDICATION

REACTIONS (3)
  - Altered state of consciousness [Unknown]
  - Encephalopathy [Unknown]
  - Coma scale abnormal [Unknown]
